FAERS Safety Report 7358003-3 (Version None)
Quarter: 2011Q1

REPORT INFORMATION
  Report Type: 
  Country: None (occurrence: None)
  Receive Date: 20110314
  Receipt Date: 20110314
  Transmission Date: 20110831
  Serious: Yes (Death)
  Sender: FDA-Public Use
  Company Number: None

PATIENT
  Sex: Female
  Weight: 88.2 kg

DRUGS (4)
  1. CYCLOPHOSPHAMIDE [Suspect]
     Dosage: 1200 MG
     Dates: end: 20110302
  2. NEULASTA [Suspect]
     Dosage: 6 MG
     Dates: end: 20110303
  3. PACLITAXEL [Suspect]
     Dosage: 200 MG
     Dates: end: 20110202
  4. DOXORUBICIN HCL [Suspect]
     Dosage: 120 MG
     Dates: end: 20110302

REACTIONS (1)
  - DEATH [None]
